FAERS Safety Report 6073936-6 (Version None)
Quarter: 2009Q1

REPORT INFORMATION
  Report Type: 
  Country: None (occurrence: None)
  Receive Date: 20090211
  Receipt Date: 20090130
  Transmission Date: 20090719
  Serious: Yes (Hospitalization)
  Sender: FDA-Public Use
  Company Number: PHHY2009CA03616

PATIENT
  Sex: Male

DRUGS (1)
  1. DIOVAN [Suspect]
     Indication: HYPERTENSION
     Dosage: 40 MG, QD
     Route: 048

REACTIONS (5)
  - CATHETER PLACEMENT [None]
  - CATHETER REMOVAL [None]
  - HAEMORRHAGE [None]
  - SURGERY [None]
  - URINARY RETENTION [None]
